FAERS Safety Report 9341765 (Version 1)
Quarter: 2013Q2

REPORT INFORMATION
  Report Type: Spontaneous
  Country: US (occurrence: None)
  Receive Date: 20130606
  Receipt Date: 20130606
  Transmission Date: 20140414
  Serious: Yes (Hospitalization)
  Sender: FDA-Public Use
  Company Number: AUR-APL-2013-04670

PATIENT
  Age: 59 Year
  Sex: Female

DRUGS (16)
  1. METFORMIN (METFORMIN) [Suspect]
     Indication: PRODUCT USED FOR UNKNOWN INDICATION
     Route: 048
  2. GABAPENTIN (GABAPENTIN) [Suspect]
     Indication: PRODUCT USED FOR UNKNOWN INDICATION
     Dosage: 2 DOSAGE FORMS BID.
     Route: 048
  3. ATENOLOL (ATENOLOL) [Suspect]
     Indication: PRODUCT USED FOR UNKNOWN INDICATION
     Route: 048
  4. DETROL LA [Suspect]
     Indication: PRODUCT USED FOR UNKNOWN INDICATION
     Route: 048
  5. CHANTIX [Suspect]
     Indication: PRODUCT USED FOR UNKNOWN INDICATION
  6. SPIRIVA [Suspect]
     Indication: PRODUCT USED FOR UNKNOWN INDICATION
  7. PRILOSEC [Concomitant]
  8. LOVASTATIN (LOVASTATIN) [Concomitant]
  9. ALBUTEROL SULFATE (SALBUTAMOL SULFATE) [Concomitant]
  10. ADVAIR DISKUS (SERETIDE) [Concomitant]
  11. NICOTINE (NICOTINE) [Concomitant]
  12. LISNIOPRIL W/HYDROCHLOROTHIAZIDE (ZESTORETIC) [Concomitant]
  13. ATIVAN (LORAZEPAM) [Concomitant]
  14. TRAZODONE HYDROCHLORIDE (TRAZODONE HYDROCHLORIDE) [Concomitant]
  15. CYMBALTA (DULOXETINE HYDROCHLORIDE) [Concomitant]
  16. TRIAMCINOLONE (TRIAMCINOLONE) [Concomitant]

REACTIONS (2)
  - Pneumonia [None]
  - Chronic obstructive pulmonary disease [None]
